FAERS Safety Report 6147133-X (Version None)
Quarter: 2009Q2

REPORT INFORMATION
  Report Type: 
  Country: None (occurrence: None)
  Receive Date: 20090406
  Receipt Date: 20090401
  Transmission Date: 20091009
  Serious: Yes (Other)
  Sender: FDA-Public Use
  Company Number: APP200801175

PATIENT
  Sex: Male

DRUGS (2)
  1. HEPARIN SODIUM INJECTION [Suspect]
     Indication: CARDIAC OPERATION
     Dosage: SEE IMAGE
     Route: 042
     Dates: start: 20080101, end: 20080101
  2. HEPARIN SODIUM INJECTION [Suspect]
     Indication: CARDIAC OPERATION
     Dosage: SEE IMAGE
     Route: 042
     Dates: start: 20080101, end: 20080101

REACTIONS (3)
  - COAGULATION TIME SHORTENED [None]
  - DRUG INEFFECTIVE [None]
  - HEPARIN RESISTANCE [None]
